FAERS Safety Report 5978500-2 (Version None)
Quarter: 2008Q4

REPORT INFORMATION
  Report Type: 
  Country: None (occurrence: None)
  Receive Date: 20081126
  Receipt Date: 20081117
  Transmission Date: 20090506
  Serious: Yes (Other)
  Sender: FDA-Public Use
  Company Number: APP200801160

PATIENT
  Age: 82 Year
  Sex: Female

DRUGS (3)
  1. MIDAZOLAM HYDROCHLORIDE [Suspect]
     Indication: ENDOTRACHEAL INTUBATION
     Dosage: INTRAVENOUS
     Route: 042
     Dates: start: 20081002, end: 20081002
  2. ETOMIDATE [Suspect]
     Indication: ENDOTRACHEAL INTUBATION
     Dosage: INTRAVENOUS
     Route: 042
     Dates: start: 20081002, end: 20081002
  3. BLINDED THERAPY [Suspect]
     Indication: PNEUMONIA
     Dosage: INTRAVENOUS
     Route: 042
     Dates: start: 20081002, end: 20081008

REACTIONS (3)
  - CHOLECYSTITIS [None]
  - HEPATITIS TOXIC [None]
  - ISCHAEMIC HEPATITIS [None]
